FAERS Safety Report 14067035 (Version 1)
Quarter: 2017Q4

REPORT INFORMATION
  Report Type: Spontaneous
  Country: US (occurrence: None)
  Receive Date: 20171009
  Receipt Date: 20171009
  Transmission Date: 20180321
  Serious: Yes (Hospitalization)
  Sender: FDA-Public Use
  Company Number: None

PATIENT
  Age: 42 Year
  Sex: Male
  Weight: 108.9 kg

DRUGS (1)
  1. IPILIMUMAB (BMS-7340106; MDX-010 TRANSFECTOMA-DERIVED) [Suspect]
     Active Substance: IPILIMUMAB
     Dates: end: 20170223

REACTIONS (6)
  - Pain in extremity [None]
  - Sepsis [None]
  - Erythema [None]
  - Cellulitis [None]
  - Groin pain [None]
  - Weight bearing difficulty [None]

NARRATIVE: CASE EVENT DATE: 20170321
